FAERS Safety Report 17855223 (Version 1)
Quarter: 2020Q2

REPORT INFORMATION
  Report Type: Spontaneous
  Country: US (occurrence: US)
  Receive Date: 20200602
  Receipt Date: 20200602
  Transmission Date: 20200714
  Serious: Yes (Hospitalization)
  Sender: FDA-Public Use
  Company Number: None

PATIENT
  Age: 71 Year
  Sex: Male
  Weight: 78 kg

DRUGS (1)
  1. OBINUTUZUMAB (OBINUTUZUMAB 25MG/ML INJ,VIL,40ML) [Suspect]
     Active Substance: OBINUTUZUMAB
     Dosage: ?          OTHER FREQUENCY:OTHER;OTHER ROUTE:IV?
     Dates: start: 20200226

REACTIONS (3)
  - Dyspnoea [None]
  - Infusion related reaction [None]
  - Oedema peripheral [None]

NARRATIVE: CASE EVENT DATE: 20200227
